FAERS Safety Report 10026335 (Version 2)
Quarter: 2014Q1

REPORT INFORMATION
  Report Type: Spontaneous
  Country: US (occurrence: US)
  Receive Date: 20140321
  Receipt Date: 20140321
  Transmission Date: 20141002
  Serious: No
  Sender: FDA-Public Use
  Company Number: US-ALLERGAN-1314106US

PATIENT
  Sex: Female

DRUGS (2)
  1. LUMIGAN [Suspect]
     Indication: PRODUCT USED FOR UNKNOWN INDICATION
     Dosage: UNK, AT NIGHT
  2. SIMBRINZA [Suspect]
     Indication: GLAUCOMA
     Dosage: 1 DROP IN EACH EYE, THREE TIMES A DAY
     Dates: start: 20130828

REACTIONS (2)
  - Ocular hyperaemia [Not Recovered/Not Resolved]
  - Foreign body sensation in eyes [Not Recovered/Not Resolved]
